FAERS Safety Report 16198502 (Version 1)
Quarter: 2019Q2

REPORT INFORMATION
  Report Type: Spontaneous
  Country: HR (occurrence: HR)
  Receive Date: 20190415
  Receipt Date: 20190415
  Transmission Date: 20190711
  Serious: Yes (Hospitalization, Other)
  Sender: FDA-Public Use
  Company Number: HR-BAYER-2019-073985

PATIENT
  Sex: Male

DRUGS (6)
  1. ANTI DIABETES [Concomitant]
  2. RAMIPRIL. [Concomitant]
     Active Substance: RAMIPRIL
  3. ASPIRIN PROTECT 100 MG [Suspect]
     Active Substance: ASPIRIN
     Indication: CEREBROVASCULAR ACCIDENT PROPHYLAXIS
     Dosage: 100 UNK
     Dates: start: 201612
  4. XARELTO [Suspect]
     Active Substance: RIVAROXABAN
     Indication: ANTICOAGULANT THERAPY
     Dosage: UNK
     Dates: start: 201811
  5. NEBIVOLOL. [Concomitant]
     Active Substance: NEBIVOLOL
  6. AMIODARONE [Concomitant]
     Active Substance: AMIODARONE
     Dosage: 200 MG

REACTIONS (6)
  - Transient ischaemic attack [None]
  - Off label use [None]
  - Dyspnoea [None]
  - Palpitations [None]
  - Arrhythmia supraventricular [None]
  - Atrial fibrillation [None]

NARRATIVE: CASE EVENT DATE: 201809
